FAERS Safety Report 8992654 (Version 3)
Quarter: 2013Q2

REPORT INFORMATION
  Report Type: Spontaneous
  Country: JP (occurrence: JP)
  Receive Date: 20130101
  Receipt Date: 20130429
  Transmission Date: 20140414
  Serious: Yes (Hospitalization, Other)
  Sender: FDA-Public Use
  Company Number: PHHY2012JP074119

PATIENT
  Age: 68 Year
  Sex: Male
  Weight: 60 kg

DRUGS (18)
  1. GLIVEC [Suspect]
     Indication: CHRONIC MYELOID LEUKAEMIA
     Dosage: 400 MG, UNK
     Route: 048
     Dates: start: 20100526, end: 20120825
  2. SOLU MEDROL [Suspect]
     Indication: INTERSTITIAL LUNG DISEASE
     Dosage: 1000 MG, ONCE DAILY
     Dates: end: 20120826
  3. SOLU MEDROL [Suspect]
     Dosage: 1000 MG, QD
     Dates: start: 20120901, end: 20120903
  4. PREDONINE [Suspect]
     Indication: INTERSTITIAL LUNG DISEASE
     Dosage: 50 MG, (10 TABLETS)
     Route: 048
     Dates: start: 20120827
  5. PREDONINE [Suspect]
     Dosage: 40 MG, DAILY
     Dates: start: 20120829
  6. PREDONINE [Suspect]
     Dosage: 50 MG, DAILY
  7. PREDONINE [Suspect]
     Dosage: 60 MG, (12 TABLETS)
     Route: 048
     Dates: start: 20120903
  8. PREDONINE [Suspect]
     Dosage: 50 MG, UNK
     Dates: start: 20120911
  9. PREDONINE [Suspect]
     Dosage: 40 MG, UNK
     Dates: start: 20120914
  10. PREDONINE [Suspect]
     Dosage: 30 MG, UNK
     Dates: start: 20120918
  11. PREDONINE [Suspect]
     Dosage: 20 MG, UNK
     Dates: start: 20120921
  12. PREDONINE [Suspect]
     Dosage: 17.5 MG, UNK
     Dates: start: 20121019
  13. PREDONINE [Suspect]
     Dosage: 20 MG, DAILY
  14. PREDONINE [Suspect]
     Dosage: 17.5 MG, DAILY
     Dates: start: 20121109
  15. SPRYCEL [Concomitant]
     Dosage: 20 MG, UNK
     Dates: start: 20121025
  16. SPRYCEL [Concomitant]
     Dosage: 40 MG, UNK
     Dates: start: 20121122
  17. SPRYCEL [Concomitant]
     Dosage: 60 MG, UNK
     Dates: start: 20121206
  18. MUCOSTA [Concomitant]

REACTIONS (11)
  - Interstitial lung disease [Recovered/Resolved with Sequelae]
  - Dyspnoea exertional [Recovered/Resolved with Sequelae]
  - Amyloidosis [Recovered/Resolved with Sequelae]
  - Lung disorder [Recovered/Resolved with Sequelae]
  - Pneumomediastinum [Not Recovered/Not Resolved]
  - Pneumonia cytomegaloviral [Recovered/Resolved]
  - Diabetes mellitus [Not Recovered/Not Resolved]
  - Eczema nummular [Recovered/Resolved]
  - Erythema [Recovering/Resolving]
  - Eosinophil count increased [Recovered/Resolved]
  - Rash [Unknown]
